FAERS Safety Report 17767175 (Version 1)
Quarter: 2020Q2

REPORT INFORMATION
  Report Type: Report from Study
  Country: IT (occurrence: IT)
  Receive Date: 20200511
  Receipt Date: 20200511
  Transmission Date: 20200714
  Serious: Yes (Other)
  Sender: FDA-Public Use
  Company Number: PHHY2015IT071151

PATIENT
  Age: 46 Year
  Sex: Male
  Weight: 80 kg

DRUGS (2)
  1. GILENYA [Suspect]
     Active Substance: FINGOLIMOD HYDROCHLORIDE
     Indication: MULTIPLE SCLEROSIS
     Dosage: 0.5 MG, QD
     Route: 048
     Dates: start: 20150129, end: 20160720
  2. LYRICA [Concomitant]
     Active Substance: PREGABALIN
     Indication: ANXIETY
     Dosage: 75 MG, UNK
     Route: 065
     Dates: start: 20150501

REACTIONS (8)
  - Blood cholesterol increased [Unknown]
  - Depression [Unknown]
  - Hepatic enzyme increased [Recovered/Resolved]
  - White blood cell count decreased [Unknown]
  - Hyperhidrosis [Recovered/Resolved]
  - Hepatic steatosis [Unknown]
  - High density lipoprotein increased [Unknown]
  - Urinary incontinence [Unknown]

NARRATIVE: CASE EVENT DATE: 20150413
